FAERS Safety Report 25578104 (Version 3)
Quarter: 2025Q3

REPORT INFORMATION
  Report Type: Spontaneous
  Country: US (occurrence: US)
  Receive Date: 20250718
  Receipt Date: 20250818
  Transmission Date: 20251020
  Serious: No
  Sender: PFIZER
  Company Number: US-PFIZER INC-202500144850

PATIENT
  Age: 5 Year
  Sex: Male

DRUGS (1)
  1. GENOTROPIN [Suspect]
     Active Substance: SOMATROPIN
     Dosage: 0.5 MG, DAILY [INJECTED]
     Dates: start: 202506

REACTIONS (4)
  - Device leakage [Unknown]
  - Product solubility abnormal [Unknown]
  - Product reconstitution quality issue [Unknown]
  - Drug dose omission by device [Unknown]
